FAERS Safety Report 18512734 (Version 2)
Quarter: 2020Q4

REPORT INFORMATION
  Report Type: Report from Study
  Country: FR (occurrence: FR)
  Receive Date: 20201117
  Receipt Date: 20201202
  Transmission Date: 20210114
  Serious: Yes (Death, Hospitalization)
  Sender: FDA-Public Use
  Company Number: FR-BIOVITRUM-2020FR6348

PATIENT
  Age: 54 Year
  Sex: Male

DRUGS (2)
  1. KINERET [Suspect]
     Active Substance: ANAKINRA
     Indication: COVID-19
     Dosage: 100 MG/0.67 ML
     Route: 042
     Dates: start: 20200409, end: 20200416
  2. ENOXAPARINE [Concomitant]
     Active Substance: ENOXAPARIN

REACTIONS (5)
  - Multiple organ dysfunction syndrome [Fatal]
  - Enterococcal infection [Fatal]
  - Acinetobacter infection [Fatal]
  - Pneumonia bacterial [Fatal]
  - Bronchopulmonary aspergillosis [Fatal]

NARRATIVE: CASE EVENT DATE: 20200502
